FAERS Safety Report 13485828 (Version 5)
Quarter: 2017Q3

REPORT INFORMATION
  Report Type: Spontaneous
  Country: JP (occurrence: JP)
  Receive Date: 20170426
  Receipt Date: 20170712
  Transmission Date: 20171127
  Serious: Yes (Death, Hospitalization, Other)
  Sender: FDA-Public Use
  Company Number: JP-GLAXOSMITHKLINE-JP2017JPN057841

PATIENT
  Age: 43 Year
  Sex: Male

DRUGS (10)
  1. VIMPAT [Concomitant]
     Active Substance: LACOSAMIDE
     Indication: EPILEPSY
     Dosage: 200 MG, BID
  2. LANSOPRAZOLE-OD [Concomitant]
     Active Substance: LANSOPRAZOLE
     Dosage: UNK
  3. PRIMPERAN FINE GRANULES [Concomitant]
     Dosage: UNK
  4. FYCOMPA [Concomitant]
     Active Substance: PERAMPANEL
     Indication: EPILEPSY
     Dosage: 4 MG, QD
  5. RIKKUNSHITOU [Concomitant]
     Dosage: UNK
  6. LAMICTAL [Suspect]
     Active Substance: LAMOTRIGINE
     Indication: EPILEPSY
     Dosage: 250 MG, BID
     Route: 050
     Dates: start: 20170418, end: 20170612
  7. AMLODIPINE [Concomitant]
     Active Substance: AMLODIPINE BESYLATE
     Dosage: UNK
  8. FUROSEMIDE. [Concomitant]
     Active Substance: FUROSEMIDE
     Dosage: UNK
  9. E KEPPRA DRY SYRUP [Concomitant]
     Dosage: UNK
  10. OLMETEC [Concomitant]
     Active Substance: OLMESARTAN MEDOXOMIL
     Dosage: UNK

REACTIONS (8)
  - Communication disorder [Unknown]
  - Vomiting [Unknown]
  - Condition aggravated [Fatal]
  - Depressed level of consciousness [Unknown]
  - Peptic ulcer [Unknown]
  - Prescribed overdose [Unknown]
  - Glioma [Fatal]
  - Vision blurred [Unknown]

NARRATIVE: CASE EVENT DATE: 201506
